FAERS Safety Report 13953630 (Version 1)
Quarter: 2017Q3

REPORT INFORMATION
  Report Type: Spontaneous
  Country: US (occurrence: US)
  Receive Date: 20170911
  Receipt Date: 20170911
  Transmission Date: 20171128
  Serious: No
  Sender: FDA-Public Use
  Company Number: US-PFIZER INC-2017389223

PATIENT
  Age: 82 Year
  Sex: Female
  Weight: 68.4 kg

DRUGS (1)
  1. GABAPENTIN. [Suspect]
     Active Substance: GABAPENTIN
     Indication: POST HERPETIC NEURALGIA
     Dosage: 300 MG, 3X/DAY
     Route: 048
     Dates: start: 201707

REACTIONS (3)
  - Drug ineffective [Unknown]
  - Rash macular [Recovering/Resolving]
  - Somnolence [Unknown]

NARRATIVE: CASE EVENT DATE: 201707
